FAERS Safety Report 5983457-4 (Version None)
Quarter: 2008Q4

REPORT INFORMATION
  Report Type: 
  Country: None (occurrence: None)
  Receive Date: 20081126
  Receipt Date: 20080422
  Transmission Date: 20090506
  Serious: Yes (Hospitalization)
  Sender: FDA-Public Use
  Company Number: 2008BH004366

PATIENT
  Age: 23 Month
  Sex: Female
  Weight: 11.7 kg

DRUGS (6)
  1. DIANEAL [Suspect]
     Indication: PERITONEAL DIALYSIS
     Dosage: IP
     Route: 033
     Dates: start: 20060601
  2. CALCITRIOL [Concomitant]
  3. FERINSOL [Concomitant]
  4. ZANTAC [Concomitant]
  5. EPOGEN [Concomitant]
  6. POTASSIUM CHLORIDE [Concomitant]

REACTIONS (4)
  - IRRITABILITY [None]
  - PERITONEAL DIALYSIS COMPLICATION [None]
  - PERITONITIS BACTERIAL [None]
  - PYREXIA [None]
